FAERS Safety Report 7794399-6 (Version None)
Quarter: 2011Q4

REPORT INFORMATION
  Report Type: 
  Country: None (occurrence: None)
  Receive Date: 20111004
  Receipt Date: 20110921
  Transmission Date: 20120403
  Serious: Yes (Hospitalization)
  Sender: FDA-Public Use
  Company Number: FR-SANOFI-AVENTIS-2011SA061909

PATIENT
  Age: 72 Year
  Sex: Male

DRUGS (13)
  1. ARAVA [Suspect]
     Indication: RHEUMATOID ARTHRITIS
     Route: 048
     Dates: start: 20000901, end: 20110901
  2. ANDROCUR [Concomitant]
  3. LANSOPRAZOLE [Concomitant]
  4. CLORAZEPATE DIPOTASSIUM [Concomitant]
  5. LASIX [Concomitant]
  6. RAMIPRIL [Concomitant]
  7. EPOGEN [Concomitant]
  8. ATORVASTATIN CALCIUM [Concomitant]
  9. ASPIRIN [Concomitant]
     Route: 048
  10. ZOPICLONE [Concomitant]
  11. PREDNISONE [Concomitant]
  12. AZOPT [Concomitant]
  13. ALLOPURINOL [Concomitant]

REACTIONS (5)
  - SEPTIC SHOCK [None]
  - RENAL FAILURE ACUTE [None]
  - BLOOD CREATININE INCREASED [None]
  - RENAL FAILURE CHRONIC [None]
  - PYELONEPHRITIS [None]
